FAERS Safety Report 20949989 (Version 2)
Quarter: 2022Q4

REPORT INFORMATION
  Report Type: Spontaneous
  Country: GB (occurrence: GB)
  Receive Date: 20220613
  Receipt Date: 20221021
  Transmission Date: 20230113
  Serious: Yes (Other)
  Sender: FDA-Public Use
  Company Number: GB-ALIMERA SCIENCES LIMITED-GB-A16013-22-000132

PATIENT
  Sex: Female

DRUGS (1)
  1. ILUVIEN [Suspect]
     Active Substance: FLUOCINOLONE ACETONIDE
     Indication: Uveitis
     Dosage: 0.25 MICROGRAM, QD - UNKNOWN EYE
     Route: 031
     Dates: start: 2017

REACTIONS (2)
  - Hypotony of eye [Unknown]
  - Device difficult to use [Unknown]
